FAERS Safety Report 22795110 (Version 2)
Quarter: 2023Q4

REPORT INFORMATION
  Report Type: Spontaneous
  Country: GR (occurrence: GR)
  Receive Date: 20230807
  Receipt Date: 20231006
  Transmission Date: 20240110
  Serious: Yes (Hospitalization, Other)
  Sender: FDA-Public Use
  Company Number: GR-BAYER-2023A109896

PATIENT
  Age: 57 Year
  Sex: Male

DRUGS (2)
  1. ULTRAVIST [Suspect]
     Active Substance: IOPROMIDE
     Indication: Computerised tomogram heart
     Dosage: UNK, ONCE
     Dates: start: 20230801, end: 20230801
  2. METOPROLOL SUCCINATE [Concomitant]
     Active Substance: METOPROLOL SUCCINATE
     Dosage: 25 MG, ONCE
     Route: 048
     Dates: start: 20230801, end: 20230801

REACTIONS (3)
  - Dyspnoea [Recovering/Resolving]
  - Hypertensive crisis [Recovering/Resolving]
  - PO2 decreased [Recovering/Resolving]

NARRATIVE: CASE EVENT DATE: 20230801
